FAERS Safety Report 7502862-8 (Version None)
Quarter: 2011Q2

REPORT INFORMATION
  Report Type: 
  Country: None (occurrence: None)
  Receive Date: 20110525
  Receipt Date: 20100907
  Transmission Date: 20111010
  Serious: No
  Sender: FDA-Public Use
  Company Number: US-NOVEN-ALL1-2010-04303

PATIENT

DRUGS (2)
  1. DAYTRANA [Suspect]
     Dosage: 10 MG, 1X/DAY:QD
     Route: 062
     Dates: start: 20100401
  2. RISPERDAL [Concomitant]
     Dosage: 5 MG, 2X/DAY:BID
     Route: 048
     Dates: start: 20080901

REACTIONS (8)
  - APPLICATION SITE DRYNESS [None]
  - PRODUCT QUALITY ISSUE [None]
  - APPLICATION SITE EROSION [None]
  - APPLICATION SITE PRURITUS [None]
  - APPLICATION SITE SWELLING [None]
  - APPLICATION SITE VESICLES [None]
  - APPLICATION SITE DISCHARGE [None]
  - DRUG ADMINISTERED AT INAPPROPRIATE SITE [None]
